FAERS Safety Report 4854583-8 (Version None)
Quarter: 2005Q4

REPORT INFORMATION
  Report Type: 
  Country: None (occurrence: None)
  Receive Date: 20051215
  Receipt Date: 20050509
  Transmission Date: 20060501
  Serious: Yes (Disabling, Other)
  Sender: FDA-Public Use
  Company Number: ES-BRISTOL-MYERS SQUIBB COMPANY-12962783

PATIENT
  Age: 52 Year
  Sex: Female

DRUGS (4)
  1. ABILIFY [Suspect]
     Indication: BIPOLAR DISORDER
     Route: 048
     Dates: start: 20050408
  2. VALPROIC ACID [Concomitant]
     Dates: start: 20050504
  3. CLORIMIPRAMINE [Concomitant]
     Dates: start: 20050408, end: 20050505
  4. DIPOTASSIUM CLORAZEPATE [Concomitant]
     Dates: start: 20050413

REACTIONS (4)
  - AKINESIA [None]
  - EXTRAPYRAMIDAL DISORDER [None]
  - HYPERTONIA [None]
  - MASKED FACIES [None]
